FAERS Safety Report 11059316 (Version 1)
Quarter: 2015Q2

REPORT INFORMATION
  Report Type: Spontaneous
  Country: US (occurrence: None)
  Receive Date: 20150422
  Receipt Date: 20150422
  Transmission Date: 20150821
  Serious: Yes (Other)
  Sender: FDA-Public Use
  Company Number: None

PATIENT
  Age: 57 Year
  Sex: Male
  Weight: 94.8 kg

DRUGS (10)
  1. ALPRAZOLAM. [Concomitant]
     Active Substance: ALPRAZOLAM
  2. TRAMADOL [Concomitant]
     Active Substance: TRAMADOL
  3. GABAPENTIN 300 MG CAPSULE ASCEND LABORATORIES [Suspect]
     Active Substance: GABAPENTIN
     Indication: PHANTOM PAIN
     Route: 048
     Dates: start: 20150105, end: 20150414
  4. BAYER CONTOUR GLUCOMETER [Concomitant]
  5. CARVEDILOL. [Concomitant]
     Active Substance: CARVEDILOL
  6. ROSUVASTATIN [Concomitant]
     Active Substance: ROSUVASTATIN
  7. LISINOPRIL. [Concomitant]
     Active Substance: LISINOPRIL
  8. GLIPIZIDE. [Concomitant]
     Active Substance: GLIPIZIDE
  9. SPIRONOLACTONE. [Concomitant]
     Active Substance: SPIRONOLACTONE
  10. ASPIRIN. [Concomitant]
     Active Substance: ASPIRIN

REACTIONS (2)
  - Glycosylated haemoglobin increased [None]
  - Abdominal discomfort [None]

NARRATIVE: CASE EVENT DATE: 20150105
